FAERS Safety Report 8755885 (Version 3)
Quarter: 2012Q4

REPORT INFORMATION
  Report Type: 
  Country: ES (occurrence: ES)
  Receive Date: 20120828
  Receipt Date: 20121128
  Transmission Date: 20130627
  Serious: Yes (Other)
  Sender: FDA-Public Use
  Company Number: ES-ROCHE-1103634

PATIENT
  Age: 24 Year
  Sex: Male
  Weight: 65 kg

DRUGS (2)
  1. OMALIZUMAB [Suspect]
     Indication: ANAPHYLACTIC REACTION
     Route: 065
     Dates: start: 200812
  2. OMALIZUMAB [Suspect]
     Indication: OFF LABEL USE

REACTIONS (4)
  - Lymphocytic hypophysitis [Unknown]
  - Secondary adrenocortical insufficiency [Unknown]
  - Hypothyroidism [Unknown]
  - Urticaria [Recovered/Resolved]
